FAERS Safety Report 10394093 (Version 1)
Quarter: 2014Q3

REPORT INFORMATION
  Report Type: Spontaneous
  Country: RU (occurrence: RU)
  Receive Date: 20140819
  Receipt Date: 20140819
  Transmission Date: 20150326
  Serious: Yes (Other)
  Sender: FDA-Public Use
  Company Number: RU-ASTRAZENECA-2014SE59595

PATIENT
  Sex: Male

DRUGS (2)
  1. SEROQUEL [Suspect]
     Active Substance: QUETIAPINE FUMARATE
     Indication: DEMENTIA
     Route: 048
  2. WARFARIN [Interacting]
     Active Substance: WARFARIN
     Indication: THROMBOPHLEBITIS

REACTIONS (3)
  - International normalised ratio increased [Not Recovered/Not Resolved]
  - Drug interaction [Unknown]
  - Haemorrhoidal haemorrhage [Unknown]
